FAERS Safety Report 8495061-7 (Version None)
Quarter: 2012Q3

REPORT INFORMATION
  Report Type: 
  Country: None (occurrence: None)
  Receive Date: 20120709
  Receipt Date: 20120627
  Transmission Date: 20120928
  Serious: Yes (Other)
  Sender: FDA-Public Use
  Company Number: DE-UCBSA-060902

PATIENT
  Age: 44 Year
  Sex: Male
  Weight: 85 kg

DRUGS (5)
  1. CIMZIA [Suspect]
     Dates: start: 20110801
  2. LEFLUNOMIDE [Concomitant]
     Dates: start: 20110501, end: 20111101
  3. LEFLUNOMIDE [Concomitant]
     Dates: start: 20120201
  4. PREDNISOLONE [Concomitant]
     Dosage: 20-30 MG/D
  5. CORTISONE ACETATE [Suspect]

REACTIONS (4)
  - DIABETES MELLITUS [None]
  - LIVER DISORDER [None]
  - BACK PAIN [None]
  - TENDON DISORDER [None]
